FAERS Safety Report 6634102-6 (Version None)
Quarter: 2010Q1

REPORT INFORMATION
  Report Type: 
  Country: None (occurrence: None)
  Receive Date: 20100315
  Receipt Date: 20100304
  Transmission Date: 20100710
  Serious: Yes (Hospitalization)
  Sender: FDA-Public Use
  Company Number: US-BRISTOL-MYERS SQUIBB COMPANY-15003007

PATIENT

DRUGS (1)
  1. SINEMET [Suspect]

REACTIONS (3)
  - CARDIAC FAILURE CONGESTIVE [None]
  - DYSPHAGIA [None]
  - RENAL FAILURE [None]
